FAERS Safety Report 7526603-3 (Version None)
Quarter: 2011Q2

REPORT INFORMATION
  Report Type: 
  Country: None (occurrence: None)
  Receive Date: 20110606
  Receipt Date: 20110527
  Transmission Date: 20111010
  Serious: Yes (Other)
  Sender: FDA-Public Use
  Company Number: US-BAXTER-2011BH018476

PATIENT

DRUGS (2)
  1. FEIBA VH [Suspect]
     Indication: HAEMOSTASIS
     Route: 065
  2. FEIBA VH [Suspect]
     Indication: OFF LABEL USE
     Route: 065

REACTIONS (1)
  - DEEP VEIN THROMBOSIS [None]
